FAERS Safety Report 7137618-1 (Version None)
Quarter: 2010Q4

REPORT INFORMATION
  Report Type: 
  Country: None (occurrence: None)
  Receive Date: 20101102
  Receipt Date: 20100720
  Transmission Date: 20110411
  Serious: Yes (Hospitalization)
  Sender: FDA-Public Use
  Company Number: 242055USA

PATIENT
  Sex: Female

DRUGS (1)
  1. DIVALPROEX SODIUM [Suspect]
     Dosage: (250 MG)

REACTIONS (3)
  - JUDGEMENT IMPAIRED [None]
  - MOOD SWINGS [None]
  - ROAD TRAFFIC ACCIDENT [None]
